FAERS Safety Report 9648680 (Version 2)
Quarter: 2013Q4

REPORT INFORMATION
  Report Type: Spontaneous
  Country: FR (occurrence: FR)
  Receive Date: 20131028
  Receipt Date: 20131113
  Transmission Date: 20140711
  Serious: Yes (Hospitalization)
  Sender: FDA-Public Use
  Company Number: FR-PFIZER INC-2013304104

PATIENT
  Age: 67 Year
  Sex: Male

DRUGS (10)
  1. RAPAMUNE [Suspect]
     Dosage: UNK MG, DAILY
     Route: 048
     Dates: start: 201109, end: 201306
  2. RAPAMUNE [Suspect]
     Dosage: 2 MG, DAILY
     Route: 048
     Dates: start: 201306, end: 20130913
  3. CELLCEPT [Concomitant]
     Dosage: 500 MG, 2X/DAY
  4. SOLUPRED [Concomitant]
     Dosage: 10 MG, DAILY
  5. VASTEN [Concomitant]
     Dosage: 40 MG, DAILY
  6. TEMERIT [Concomitant]
     Dosage: 5 MG, DAILY
  7. ZYLORIC [Concomitant]
     Dosage: 100 MG, DAILY
  8. ZOPICLONE [Concomitant]
     Dosage: 7.5 MG, DAILY
  9. HYPERIUM [Concomitant]
     Dosage: 1 MG, 2X/DAY
  10. ATACAND [Concomitant]
     Dosage: 8 MG, DAILY

REACTIONS (3)
  - Interstitial lung disease [Recovered/Resolved]
  - Cough [Recovered/Resolved]
  - Pyrexia [Recovered/Resolved]
